FAERS Safety Report 6325249-2 (Version None)
Quarter: 2009Q3

REPORT INFORMATION
  Report Type: 
  Country: None (occurrence: None)
  Receive Date: 20090824
  Receipt Date: 20090629
  Transmission Date: 20100115
  Serious: No
  Sender: FDA-Public Use
  Company Number: US-ABBOTT-09P-163-0582466-00

PATIENT
  Sex: Female
  Weight: 49.94 kg

DRUGS (11)
  1. NIASPAN [Suspect]
     Indication: LOW DENSITY LIPOPROTEIN INCREASED
     Dates: start: 20081101
  2. NIASPAN [Suspect]
     Indication: HIGH DENSITY LIPOPROTEIN DECREASED
  3. FEMARA [Concomitant]
     Indication: DRUG USE FOR UNKNOWN INDICATION
  4. RECLAST [Concomitant]
     Indication: DRUG USE FOR UNKNOWN INDICATION
  5. ESTRACE [Concomitant]
     Indication: DRUG USE FOR UNKNOWN INDICATION
  6. MULTI-VITAMIN [Concomitant]
     Indication: DRUG USE FOR UNKNOWN INDICATION
  7. VITAMIN B-12 [Concomitant]
     Indication: DRUG USE FOR UNKNOWN INDICATION
  8. CALCIUM +VIT D [Concomitant]
     Indication: DRUG USE FOR UNKNOWN INDICATION
  9. CHOLESTOFF [Concomitant]
     Indication: DRUG USE FOR UNKNOWN INDICATION
  10. LOVAZA [Concomitant]
     Indication: DRUG USE FOR UNKNOWN INDICATION
  11. ASPIRIN [Concomitant]
     Indication: DRUG USE FOR UNKNOWN INDICATION

REACTIONS (1)
  - CONTUSION [None]
